FAERS Safety Report 13164160 (Version 1)
Quarter: 2017Q1

REPORT INFORMATION
  Report Type: Spontaneous
  Country: US (occurrence: US)
  Receive Date: 20170130
  Receipt Date: 20170130
  Transmission Date: 20170428
  Serious: Yes (Hospitalization)
  Sender: FDA-Public Use
  Company Number: US-LPDUSPRD-20170069

PATIENT
  Age: 80 Year
  Sex: Male

DRUGS (4)
  1. CYCLOSPORINE INJECTION, USP (866-10) [Suspect]
     Active Substance: CYCLOSPORINE
     Dosage: DOSE NOT PROVIDED
     Route: 065
  2. MYCOPHENOLIC ACID. [Concomitant]
     Active Substance: MYCOPHENOLIC ACID
     Dosage: DOSE NOT PROVIDED.
     Route: 065
  3. CAMPATH [Suspect]
     Active Substance: ALEMTUZUMAB
     Dosage: DOSE NOT PROVIDED
     Route: 065
  4. RITUXIMAB [Suspect]
     Active Substance: RITUXIMAB
     Dosage: DOSE NOT PROVIDED
     Route: 065

REACTIONS (3)
  - Cytomegalovirus viraemia [Recovered/Resolved with Sequelae]
  - Chronic allograft nephropathy [Unknown]
  - Glomerulonephritis [Unknown]
